FAERS Safety Report 17124882 (Version 1)
Quarter: 2019Q4

REPORT INFORMATION
  Report Type: Spontaneous
  Country: NL (occurrence: DK)
  Receive Date: 20191206
  Receipt Date: 20191206
  Transmission Date: 20200122
  Serious: Yes (Disabling)
  Sender: FDA-Public Use
  Company Number: DK-FRESENIUS KABI-FK201913265

PATIENT
  Age: 67 Year
  Sex: Female

DRUGS (2)
  1. ZOLEDRONIC ACID (MANUFACTURER UNKNOWN) [Suspect]
     Active Substance: ZOLEDRONIC ACID
     Indication: METASTASES TO BONE
     Dosage: STRENGTH: NOT UNKNOWN?DOSE: VAIES
     Route: 042
     Dates: start: 20111227, end: 20190328
  2. FULVESTRANT. [Concomitant]
     Active Substance: FULVESTRANT
     Indication: BREAST CANCER
     Dosage: STRENGTH: 250 MG/5 ML.?DOSE: NOT KNOWN.
     Route: 030
     Dates: start: 2014

REACTIONS (4)
  - Tooth extraction [Recovered/Resolved]
  - Loose tooth [Recovered/Resolved]
  - Osteonecrosis of jaw [Unknown]
  - Sequestrectomy [Recovered/Resolved]

NARRATIVE: CASE EVENT DATE: 2014
